FAERS Safety Report 20589953 (Version 1)
Quarter: 2022Q1

REPORT INFORMATION
  Report Type: Spontaneous
  Country: US (occurrence: US)
  Receive Date: 20220314
  Receipt Date: 20220314
  Transmission Date: 20220423
  Serious: Yes (Death, Other)
  Sender: FDA-Public Use
  Company Number: US-GLAXOSMITHKLINE-US2022GSK045784

PATIENT
  Sex: Female

DRUGS (8)
  1. ZANTAC [Suspect]
     Active Substance: RANITIDINE HYDROCHLORIDE
     Indication: Dyspepsia
     Dosage: 75 MG, 3-4 TIMES A WEEK
     Route: 065
     Dates: start: 199806, end: 201204
  2. ZANTAC [Suspect]
     Active Substance: RANITIDINE HYDROCHLORIDE
     Indication: Hyperchlorhydria
     Dosage: 150 MG, 3-4 TIMES A WEEK
     Route: 065
     Dates: start: 199806, end: 201204
  3. ZANTAC [Suspect]
     Active Substance: RANITIDINE HYDROCHLORIDE
     Indication: Dyspepsia
     Dosage: 75 MG, 3-4 TIMES A WEEK
     Route: 065
     Dates: start: 199806, end: 201204
  4. ZANTAC [Suspect]
     Active Substance: RANITIDINE HYDROCHLORIDE
     Indication: Hyperchlorhydria
     Dosage: 150 MG, 3-4 TIMES A WEEK
     Route: 065
     Dates: start: 199806, end: 201204
  5. RANITIDINE HYDROCHLORIDE [Suspect]
     Active Substance: RANITIDINE HYDROCHLORIDE
     Indication: Dyspepsia
     Dosage: 75 MG, 3-4 TIMES A WEEK
     Route: 065
     Dates: start: 199806, end: 201204
  6. RANITIDINE HYDROCHLORIDE [Suspect]
     Active Substance: RANITIDINE HYDROCHLORIDE
     Indication: Hyperchlorhydria
     Dosage: 150 MG, 3-4 TIMES A WEEK
     Route: 065
     Dates: start: 199806, end: 201204
  7. RANITIDINE HYDROCHLORIDE [Suspect]
     Active Substance: RANITIDINE HYDROCHLORIDE
     Indication: Dyspepsia
     Dosage: 75 MG, 3-4 TIMES A WEEK
     Route: 065
     Dates: start: 199806, end: 201204
  8. RANITIDINE HYDROCHLORIDE [Suspect]
     Active Substance: RANITIDINE HYDROCHLORIDE
     Indication: Hyperchlorhydria
     Dosage: 150 MG, 3-4 TIMES A WEEK
     Route: 065
     Dates: start: 199806, end: 201204

REACTIONS (1)
  - Colorectal cancer [Fatal]
